FAERS Safety Report 19117282 (Version 1)
Quarter: 2021Q2

REPORT INFORMATION
  Report Type: Spontaneous
  Country: AU (occurrence: AU)
  Receive Date: 20210409
  Receipt Date: 20210409
  Transmission Date: 20210717
  Serious: Yes (Hospitalization)
  Sender: FDA-Public Use
  Company Number: AU-TEVA-2021-AU-1898499

PATIENT
  Age: 38 Year
  Sex: Male

DRUGS (15)
  1. LURASIDONE [Suspect]
     Active Substance: LURASIDONE
     Route: 065
     Dates: start: 20210302
  2. MIRTAZAPIN [Suspect]
     Active Substance: MIRTAZAPINE
     Dosage: NIGHT
     Route: 065
     Dates: start: 20210308
  3. DESVENLAFAXINE SODIUM [Suspect]
     Active Substance: DESVENLAFAXINE
     Dosage: MORNING
     Route: 065
  4. LURASIDONE [Suspect]
     Active Substance: LURASIDONE
     Route: 065
     Dates: start: 20210223
  5. LORAZEPAM. [Concomitant]
     Active Substance: LORAZEPAM
  6. LURASIDONE [Suspect]
     Active Substance: LURASIDONE
     Route: 065
     Dates: start: 20210220
  7. ASENAPINE. [Suspect]
     Active Substance: ASENAPINE
     Dosage: 10 MG NIGHT AND 5 MG MORNING
     Route: 060
  8. ARIPIPRAZOLE. [Suspect]
     Active Substance: ARIPIPRAZOLE
     Dosage: INCREASED TO 20 MG
     Route: 065
     Dates: end: 20210220
  9. BUDESONIDE. [Concomitant]
     Active Substance: BUDESONIDE
  10. ASENAPINE. [Suspect]
     Active Substance: ASENAPINE
     Dosage: 10 MILLIGRAM DAILY;
     Dates: start: 20210318
  11. OLANZAPINE. [Concomitant]
     Active Substance: OLANZAPINE
  12. CLONAZEPAM. [Suspect]
     Active Substance: CLONAZEPAM
     Dosage: 1 MILLIGRAM DAILY; NIGHT
     Route: 065
  13. MIRTAZAPIN [Suspect]
     Active Substance: MIRTAZAPINE
     Indication: DEPRESSED MOOD
     Route: 065
  14. TRIMETHOPRIM. [Suspect]
     Active Substance: TRIMETHOPRIM
     Dosage: AT DOSE OF 300MG
     Route: 065
     Dates: start: 20210219, end: 20210226
  15. TERBUTALINE [Concomitant]
     Active Substance: TERBUTALINE

REACTIONS (7)
  - Paranoia [Unknown]
  - Sedation complication [Unknown]
  - White blood cell count decreased [Unknown]
  - Anxiety [Unknown]
  - Neutrophil count decreased [Unknown]
  - Weight abnormal [Unknown]
  - Impaired quality of life [Unknown]

NARRATIVE: CASE EVENT DATE: 2021
